FAERS Safety Report 6907287-1 (Version None)
Quarter: 2010Q3

REPORT INFORMATION
  Report Type: 
  Country: None (occurrence: None)
  Receive Date: 20100804
  Receipt Date: 20100727
  Transmission Date: 20110219
  Serious: Yes (Other)
  Sender: FDA-Public Use
  Company Number: US-AMGEN-QUU427161

PATIENT
  Sex: Female

DRUGS (1)
  1. ENBREL [Suspect]
     Indication: RHEUMATOID ARTHRITIS
     Route: 058

REACTIONS (8)
  - BLOOD POTASSIUM DECREASED [None]
  - BRONCHITIS [None]
  - NASOPHARYNGITIS [None]
  - PRESYNCOPE [None]
  - SALIVARY GLAND ENLARGEMENT [None]
  - SKIN INDURATION [None]
  - SYNCOPE [None]
  - THYROID DISORDER [None]
